FAERS Safety Report 10985959 (Version 2)
Quarter: 2015Q2

REPORT INFORMATION
  Report Type: Report from Study
  Country: CA (occurrence: CA)
  Receive Date: 20150404
  Receipt Date: 20150410
  Transmission Date: 20150821
  Serious: Yes (Death, Hospitalization, Other)
  Sender: FDA-Public Use
  Company Number: PHHY2015CA012523

PATIENT
  Age: 71 Year
  Sex: Female

DRUGS (3)
  1. SANDOSTATIN LAR DEPOT [Suspect]
     Active Substance: OCTREOTIDE ACETATE
     Dosage: 30 MG, ONCE A MONTH
     Route: 030
  2. SANDOSTATIN LAR DEPOT [Suspect]
     Active Substance: OCTREOTIDE ACETATE
     Indication: OVARIAN CANCER
     Dosage: 20 MG, ONCE A MONTH
     Route: 030
     Dates: start: 20141230
  3. SANDOSTATIN [Suspect]
     Active Substance: OCTREOTIDE ACETATE
     Indication: OVARIAN CANCER
     Dosage: 150 UG, BID, FOR 14 DAYS POST 1ST LAR
     Route: 058
     Dates: start: 20141219, end: 201501

REACTIONS (12)
  - Abdominal pain [Unknown]
  - Malaise [Unknown]
  - Pain [Unknown]
  - Product use issue [Unknown]
  - Gait disturbance [Unknown]
  - Back pain [Unknown]
  - Death [Fatal]
  - Intestinal obstruction [Unknown]
  - Peripheral swelling [Unknown]
  - Diarrhoea [Recovered/Resolved]
  - Joint swelling [Unknown]
  - Abdominal pain upper [Unknown]

NARRATIVE: CASE EVENT DATE: 201412
